FAERS Safety Report 6691549-X (Version None)
Quarter: 2010Q2

REPORT INFORMATION
  Report Type: 
  Country: None (occurrence: None)
  Receive Date: 20100419
  Receipt Date: 20100408
  Transmission Date: 20101027
  Serious: Yes (Hospitalization, Other)
  Sender: FDA-Public Use
  Company Number: 2008BM000125

PATIENT
  Age: 5 Year
  Sex: Male
  Weight: 13.5 kg

DRUGS (7)
  1. NAGLAZYME [Suspect]
     Indication: MUCOPOLYSACCHARIDOSIS VI
     Dosage: 15 MG;QE;IVDRP; QW;IVDRP; 0.3 MG/KG;QW;IVDRP; 0.5 MG/KG; IVDRP
     Route: 041
     Dates: start: 20070201, end: 20080610
  2. NAGLAZYME [Suspect]
     Indication: MUCOPOLYSACCHARIDOSIS VI
     Dosage: 15 MG;QE;IVDRP; QW;IVDRP; 0.3 MG/KG;QW;IVDRP; 0.5 MG/KG; IVDRP
     Route: 041
     Dates: start: 20080601, end: 20080801
  3. NAGLAZYME [Suspect]
     Indication: MUCOPOLYSACCHARIDOSIS VI
     Dosage: 15 MG;QE;IVDRP; QW;IVDRP; 0.3 MG/KG;QW;IVDRP; 0.5 MG/KG; IVDRP
     Route: 041
     Dates: start: 20090629
  4. DOLIPRANE [Concomitant]
  5. PARACETAMOL [Concomitant]
  6. HYDROXYZINE [Concomitant]
  7. WARFARIN SODIUM [Concomitant]

REACTIONS (6)
  - ANTIBODY TEST ABNORMAL [None]
  - CONDITION AGGRAVATED [None]
  - GLOMERULONEPHRITIS MEMBRANOUS [None]
  - MUCOPOLYSACCHARIDOSIS VI [None]
  - NEPHRITIC SYNDROME [None]
  - NEPHROTIC SYNDROME [None]
